FAERS Safety Report 8191556 (Version 3)
Quarter: 2012Q4

REPORT INFORMATION
  Report Type: 
  Country: US (occurrence: US)
  Receive Date: 20111020
  Receipt Date: 20121024
  Transmission Date: 20130627
  Serious: Yes (Other)
  Sender: FDA-Public Use
  Company Number: US-ELI_LILLY_AND_COMPANY-US201110002071

PATIENT
  Age: 66 Year
  Sex: Female

DRUGS (3)
  1. FORTEO [Suspect]
     Indication: OSTEOPOROSIS
     Dosage: UNK, unknown
     Route: 065
     Dates: start: 2009
  2. FORTEO [Suspect]
     Dosage: 20 ug, UNK
     Route: 058
     Dates: start: 20111102
  3. FORTEO [Suspect]
     Dosage: 20 ug, UNK
     Route: 058
     Dates: start: 201111

REACTIONS (5)
  - Staphylococcal infection [Unknown]
  - Hip surgery [Unknown]
  - Upper limb fracture [Unknown]
  - Immune system disorder [Unknown]
  - Device dislocation [Not Recovered/Not Resolved]
